FAERS Safety Report 6246257-6 (Version None)
Quarter: 2009Q2

REPORT INFORMATION
  Report Type: 
  Country: None (occurrence: None)
  Receive Date: 20090626
  Receipt Date: 20090616
  Transmission Date: 20091009
  Serious: Yes (Other)
  Sender: FDA-Public Use
  Company Number: JP-ABBOTT-09P-087-0576353-00

PATIENT
  Sex: Female

DRUGS (5)
  1. FERO-GRADUMET TABLETS [Suspect]
     Indication: ANAEMIA
     Route: 048
     Dates: start: 20090524
  2. FERO-GRADUMET TABLETS [Suspect]
     Route: 048
     Dates: start: 20090509, end: 20090523
  3. FERO-GRADUMET TABLETS [Suspect]
     Dates: start: 20090524
  4. CEFCAPENE PIVOXIL HYDROCHLORIDE [Concomitant]
     Indication: TOOTH EXTRACTION
     Route: 048
     Dates: start: 20090503, end: 20090516
  5. LOXOPROFEN SODIUM [Concomitant]
     Indication: PAIN
     Route: 048

REACTIONS (2)
  - MENORRHAGIA [None]
  - MENSTRUATION DELAYED [None]
